FAERS Safety Report 10485984 (Version 1)
Quarter: 2014Q3

REPORT INFORMATION
  Report Type: Spontaneous
  Country: US (occurrence: None)
  Receive Date: 20140930
  Receipt Date: 20140930
  Transmission Date: 20150326
  Serious: No
  Sender: FDA-Public Use
  Company Number: None

PATIENT
  Age: 29 Year
  Sex: Female

DRUGS (1)
  1. BANANA BOAT KIDS PROTECT AND PLAY SPF 85 [Suspect]
     Active Substance: AVOBENZONE\HOMOSALATE\OCTOCRYLENE\OXYBENZONE

REACTIONS (3)
  - Drug ineffective [None]
  - Thermal burn [None]
  - Skin exfoliation [None]

NARRATIVE: CASE EVENT DATE: 20140715
